FAERS Safety Report 23553582 (Version 2)
Quarter: 2024Q1

REPORT INFORMATION
  Report Type: Report from Study
  Country: US (occurrence: US)
  Receive Date: 20240222
  Receipt Date: 20240228
  Transmission Date: 20240410
  Serious: Yes (Hospitalization)
  Sender: FDA-Public Use
  Company Number: US-Eisai-EC-2024-159215

PATIENT
  Age: 67 Year
  Sex: Female
  Weight: 54.88 kg

DRUGS (17)
  1. LENVIMA [Suspect]
     Active Substance: LENVATINIB
     Indication: Renal cancer
     Route: 048
     Dates: start: 20240206, end: 202402
  2. AMITRIPTYLINE [Concomitant]
     Active Substance: AMITRIPTYLINE
     Dosage: DOSAGE AND FREQUENCY UNKNOWN
  3. ATORVASTATIN CALCIUM [Concomitant]
     Active Substance: ATORVASTATIN CALCIUM
     Dosage: DOSAGE AND FREQUENCY UNKNOWN
  4. DEXILANT [Concomitant]
     Active Substance: DEXLANSOPRAZOLE
     Dosage: DOSAGE AND FREQUENCY UNKNOWN
  5. HYDROCHLOROTHIAZIDE [Concomitant]
     Active Substance: HYDROCHLOROTHIAZIDE
     Dosage: DOSAGE AND FREQUENCY UNKNOWN
  6. NYSTATIN [Concomitant]
     Active Substance: NYSTATIN
     Dosage: DOSAGE AND FREQUENCY UNKNOWN
  7. INCRUSE ELLIPTA [Concomitant]
     Active Substance: UMECLIDINIUM BROMIDE
     Dosage: DOSAGE AND FREQUENCY UNKNOWN
  8. BUPROPION HYDROCHLORIDE [Concomitant]
     Active Substance: BUPROPION HYDROCHLORIDE
     Dosage: DOSAGE AND FREQUENCY UNKNOWN
  9. CLONAZEPAM [Concomitant]
     Active Substance: CLONAZEPAM
     Dosage: DOSAGE AND FREQUENCY UNKNOWN
  10. FLOVENT [Concomitant]
     Active Substance: FLUTICASONE PROPIONATE
     Dosage: DOSAGE AND FREQUENCY UNKNOWN
  11. OXYCODONE [Concomitant]
     Active Substance: OXYCODONE\OXYCODONE HYDROCHLORIDE
     Dosage: DOSAGE AND FREQUENCY UNKNOWN
  12. KEYTRUDA [Concomitant]
     Active Substance: PEMBROLIZUMAB
     Indication: Renal cancer
     Dosage: DOSE AND FREQUENCY UNKNOWN
     Route: 042
  13. ONDANSETRON [Concomitant]
     Active Substance: ONDANSETRON
     Dosage: DOSAGE AND FREQUENCY UNKNOWN
  14. TYLENOL [Concomitant]
     Active Substance: ACETAMINOPHEN
     Dosage: DOSAGE AND FREQUENCY UNKNOWN
  15. DULCOLAX [Concomitant]
     Dosage: DOSAGE AND FREQUENCY UNKNOWN
  16. BENZONATATE [Concomitant]
     Active Substance: BENZONATATE
     Dosage: DOSAGE AND FREQUENCY UNKNOWN
  17. MUCINEX [Concomitant]
     Active Substance: GUAIFENESIN
     Dosage: DOSAGE AND FREQUENCY UNKNOWN

REACTIONS (6)
  - Pneumonia [Recovered/Resolved]
  - Hyponatraemia [Recovered/Resolved]
  - White blood cell count increased [Recovered/Resolved]
  - Hypertension [Not Recovered/Not Resolved]
  - Pyrexia [Recovered/Resolved]
  - Gastrooesophageal reflux disease [Recovered/Resolved]

NARRATIVE: CASE EVENT DATE: 20240201
